FAERS Safety Report 23764809 (Version 3)
Quarter: 2024Q2

REPORT INFORMATION
  Report Type: Report from Study
  Country: US (occurrence: US)
  Receive Date: 20240420
  Receipt Date: 20240513
  Transmission Date: 20240716
  Serious: Yes (Other)
  Sender: FDA-Public Use
  Company Number: US-ABBVIE-5724905

PATIENT
  Sex: Male

DRUGS (2)
  1. IMBRUVICA [Suspect]
     Active Substance: IBRUTINIB
     Indication: Waldenstrom^s macroglobulinaemia
     Dosage: FORM STRENGTH: 420 MILLIGRAM
     Route: 048
     Dates: start: 202212
  2. IMBRUVICA [Suspect]
     Active Substance: IBRUTINIB
     Indication: Waldenstrom^s macroglobulinaemia
     Dosage: FORM STRENGTH: 420 MILLIGRAM
     Route: 048
     Dates: start: 20190202

REACTIONS (16)
  - Retinal detachment [Recovering/Resolving]
  - Eye injury [Recovering/Resolving]
  - Procedural pain [Recovering/Resolving]
  - Pain [Recovering/Resolving]
  - Hypertension [Recovered/Resolved]
  - Anxiety [Recovering/Resolving]
  - Cataract [Recovered/Resolved]
  - Hypertension [Recovering/Resolving]
  - Asthenia [Unknown]
  - Panic attack [Recovering/Resolving]
  - Loss of personal independence in daily activities [Recovering/Resolving]
  - Discouragement [Unknown]
  - Depressed mood [Unknown]
  - Eyelid ptosis [Recovered/Resolved]
  - Blindness unilateral [Not Recovered/Not Resolved]
  - Eye laser surgery [Unknown]

NARRATIVE: CASE EVENT DATE: 20230101
